FAERS Safety Report 20170655 (Version 1)
Quarter: 2021Q4

REPORT INFORMATION
  Report Type: Spontaneous
  Country: CN (occurrence: CN)
  Receive Date: 20211210
  Receipt Date: 20211210
  Transmission Date: 20220303
  Serious: Yes (Other)
  Sender: FDA-Public Use
  Company Number: CN-009507513-2112CHN002931

PATIENT
  Age: 12 Year
  Sex: Female
  Weight: 30.8 kg

DRUGS (9)
  1. POSACONAZOLE [Interacting]
     Active Substance: POSACONAZOLE
     Indication: Bronchopulmonary aspergillosis
     Dosage: 120 MILLIGRAM, TID
     Route: 048
  2. VINDESINE [Interacting]
     Active Substance: VINDESINE
     Indication: Acute lymphocytic leukaemia
     Dosage: 3 MILLIGRAM/SQ. METER(3.36 MG), (DAY1(D1), D8)
     Route: 041
  3. PEGASPARGASE [Concomitant]
     Active Substance: PEGASPARGASE
     Indication: Acute lymphocytic leukaemia
     Dosage: 2500IU/M2(2800IU) IN THE BUTTOCKS (D1, D15)
     Route: 030
  4. PIRARUBICIN [Concomitant]
     Active Substance: PIRARUBICIN
     Indication: Acute lymphocytic leukaemia
     Dosage: 30 MILLIGRAM/SQ(3.36 MG). METER QD, D1, D2
     Route: 041
  5. DEXAMETHASONE ACETATE [Concomitant]
     Active Substance: DEXAMETHASONE ACETATE
     Indication: Acute lymphocytic leukaemia
     Dosage: 6 MILLIGRAM/SQ. METER(2.25 MG), TID, D1 TO D14
     Route: 048
  6. ONDANSETRON [Concomitant]
     Active Substance: ONDANSETRON
     Indication: Prophylaxis of nausea and vomiting
     Dosage: 4 MILLIGRAM, Q12H
     Route: 041
  7. GLUTATHIONE REDUCED [Concomitant]
     Indication: Prophylaxis
     Dosage: 0.6 GRAM, QD
     Route: 041
  8. DEXRAZOXANE [Concomitant]
     Active Substance: DEXRAZOXANE
     Indication: Cardiovascular event prophylaxis
     Dosage: 500 MILLIGRAM, QD
     Route: 041
  9. METHYLCOBALAMIN [Concomitant]
     Active Substance: METHYLCOBALAMIN
     Indication: Prophylaxis
     Dosage: 1 DOSAGE FORM, TID
     Route: 048

REACTIONS (4)
  - Neurotoxicity [Recovering/Resolving]
  - Drug interaction [Unknown]
  - Product use issue [Unknown]
  - Off label use [Unknown]
